FAERS Safety Report 7449741-2 (Version None)
Quarter: 2011Q1

REPORT INFORMATION
  Report Type: 
  Country: None (occurrence: None)
  Receive Date: 20110302
  Receipt Date: 20110111
  Transmission Date: 20110831
  Serious: No
  Sender: FDA-Public Use
  Company Number: 023069

PATIENT
  Sex: Male
  Weight: 127 kg

DRUGS (5)
  1. CALCIUM [Concomitant]
  2. IMURAN [Concomitant]
  3. PAXIL [Concomitant]
  4. CIMZIA [Suspect]
     Indication: CROHN'S DISEASE
     Dosage: 2 SYRINGES SUBCUTANEOUS
     Route: 058
     Dates: start: 20100719
  5. PRILOSEC [Concomitant]

REACTIONS (3)
  - DRUG INEFFECTIVE [None]
  - NEPHROLITHIASIS [None]
  - FISTULA [None]
